FAERS Safety Report 16387384 (Version 3)
Quarter: 2020Q1

REPORT INFORMATION
  Report Type: Report from Study
  Country: BR (occurrence: BR)
  Receive Date: 20190604
  Receipt Date: 20200305
  Transmission Date: 20200409
  Serious: Yes (Other)
  Sender: FDA-Public Use
  Company Number: BR-ROCHE-2250983

PATIENT
  Age: 36 Year
  Sex: Female
  Weight: 128 kg

DRUGS (6)
  1. XOLAIR [Suspect]
     Active Substance: OMALIZUMAB
     Route: 058
     Dates: start: 201811
  2. XOLAIR [Suspect]
     Active Substance: OMALIZUMAB
     Route: 058
     Dates: start: 20181213
  3. XOLAIR [Suspect]
     Active Substance: OMALIZUMAB
     Route: 058
     Dates: start: 20190118, end: 20190118
  4. PURAN [Concomitant]
     Active Substance: LEVOTHYROXINE SODIUM
     Indication: HYPOTHYROIDISM
     Dosage: UNK UNK, QD
     Route: 048
  5. XOLAIR [Suspect]
     Active Substance: OMALIZUMAB
     Indication: CHRONIC SPONTANEOUS URTICARIA
     Route: 058
     Dates: start: 20181111
  6. LORATADINE. [Concomitant]
     Active Substance: LORATADINE
     Indication: URTICARIA
     Route: 048

REACTIONS (8)
  - Pruritus [Not Recovered/Not Resolved]
  - Skin lesion [Not Recovered/Not Resolved]
  - Weight increased [Unknown]
  - Influenza [Unknown]
  - Product preparation error [Unknown]
  - Drug ineffective [Unknown]
  - Erythema [Not Recovered/Not Resolved]
  - Urticaria [Not Recovered/Not Resolved]

NARRATIVE: CASE EVENT DATE: 20181210
